FAERS Safety Report 10549382 (Version 1)
Quarter: 2014Q4

REPORT INFORMATION
  Report Type: Spontaneous
  Country: IT (occurrence: IT)
  Receive Date: 20141028
  Receipt Date: 20141028
  Transmission Date: 20150529
  Serious: Yes (Death)
  Sender: FDA-Public Use
  Company Number: PHHY2014IT139699

PATIENT
  Age: 86 Year
  Sex: Male

DRUGS (8)
  1. LANSOX [Concomitant]
     Active Substance: LANSOPRAZOLE
  2. CARDICOR [Concomitant]
     Active Substance: BISOPROLOL
  3. LASIX [Concomitant]
     Active Substance: FUROSEMIDE
  4. ZAROXOLYN [Concomitant]
     Active Substance: METOLAZONE
  5. ADENURIC [Concomitant]
     Active Substance: FEBUXOSTAT
  6. ACETYLSALICYLIC ACID [Suspect]
     Active Substance: ASPIRIN
     Indication: PROPHYLAXIS
     Dosage: 100 MG, QD
     Route: 048
  7. LANOXIN [Concomitant]
     Active Substance: DIGOXIN
  8. APLACTIN [Concomitant]
     Active Substance: PRAVASTATIN SODIUM

REACTIONS (1)
  - Rectal haemorrhage [Fatal]

NARRATIVE: CASE EVENT DATE: 20130617
